FAERS Safety Report 4698729-3 (Version None)
Quarter: 2005Q2

REPORT INFORMATION
  Report Type: 
  Country: None (occurrence: None)
  Receive Date: 20050622
  Receipt Date: 20050614
  Transmission Date: 20051028
  Serious: Yes (Hospitalization)
  Sender: FDA-Public Use
  Company Number: 215116

PATIENT
  Age: 63 Year
  Sex: Male
  Weight: 90.7 kg

DRUGS (2)
  1. ERLOTINIB OR PLACEBO (ERLOTINIB OR PLACEBO) TABLET [Suspect]
     Indication: METASTATIC RENAL CELL CARCINOMA
     Dosage: 150 MG, QD, ORAL
     Route: 048
     Dates: start: 20040916, end: 20050530
  2. BEVACIZUMAB (BEVACIZUMAB) PWDR + SOLVENT,INFUSION SOLN, 100MG [Suspect]
     Indication: METASTATIC RENAL CELL CARCINOMA
     Dosage: 909.1, Q2W, INTRAVENOUS
     Route: 042
     Dates: start: 20040916, end: 20050526

REACTIONS (3)
  - DEHYDRATION [None]
  - PULMONARY EMBOLISM [None]
  - VOMITING [None]
